FAERS Safety Report 15047717 (Version 1)
Quarter: 2018Q2

REPORT INFORMATION
  Report Type: Spontaneous
  Country: GB (occurrence: GB)
  Receive Date: 20180621
  Receipt Date: 20180621
  Transmission Date: 20180711
  Serious: Yes (Other)
  Sender: FDA-Public Use
  Company Number: GB-TEVA-2018-GB-910274

PATIENT
  Age: 72 Year
  Sex: Male
  Weight: 178 kg

DRUGS (10)
  1. HYDROCORTISONE. [Suspect]
     Active Substance: HYDROCORTISONE
     Route: 065
     Dates: start: 20180502
  2. EUMOVATE [Concomitant]
     Active Substance: CLOBETASONE BUTYRATE
     Dosage: APPLY 1-2 TIMES/DAY
     Route: 065
     Dates: start: 20171114
  3. FOLIC ACID. [Concomitant]
     Active Substance: FOLIC ACID
     Dosage: 1 DOSAGE FORMS DAILY;
     Route: 065
     Dates: start: 20171114
  4. PHENOXYMETHYLPENICILLIN [Concomitant]
     Active Substance: PENICILLIN V
     Dosage: 4 DOSAGE FORMS DAILY;
     Route: 065
     Dates: start: 20180430
  5. GABAPENTIN. [Concomitant]
     Active Substance: GABAPENTIN
     Dosage: 3 DOSAGE FORMS DAILY;
     Route: 065
     Dates: start: 20171114
  6. HYDROMOL CREAM [Concomitant]
     Dosage: USE AS DIRECTED
     Route: 065
     Dates: start: 20171114
  7. ZAPAIN [Concomitant]
     Active Substance: ACETAMINOPHEN\CODEINE PHOSPHATE
     Dosage: TAKE 1 OR 2 4 TIMES/DAY
     Route: 065
     Dates: start: 20180118
  8. FLAMAZINE [Concomitant]
     Active Substance: SILVER SULFADIAZINE
     Dosage: USE AS DIRECTED
     Route: 065
     Dates: start: 20180423
  9. DESUNIN [Concomitant]
     Active Substance: CHOLECALCIFEROL
     Dosage: 1 DOSAGE FORMS DAILY;
     Route: 065
     Dates: start: 20171114
  10. DAKTARIN [Concomitant]
     Active Substance: MICONAZOLE NITRATE
     Dosage: 2 DOSAGE FORMS DAILY; APPLY
     Route: 065
     Dates: start: 20180413, end: 20180420

REACTIONS (1)
  - Rash generalised [Recovered/Resolved]

NARRATIVE: CASE EVENT DATE: 20180502
